FAERS Safety Report 6346661-1 (Version None)
Quarter: 2009Q3

REPORT INFORMATION
  Report Type: 
  Country: None (occurrence: None)
  Receive Date: 20090904
  Receipt Date: 20090821
  Transmission Date: 20100115
  Serious: Yes (Hospitalization)
  Sender: FDA-Public Use
  Company Number: 8051173

PATIENT
  Age: 65 Year
  Sex: Female

DRUGS (2)
  1. KEPPRA [Suspect]
     Dosage: 2 G /D PO
     Route: 048
     Dates: start: 20080801, end: 20090601
  2. KEPPRA [Suspect]
     Dosage: 1 G /D PO
     Route: 048
     Dates: start: 20090601

REACTIONS (1)
  - THROMBOCYTOPENIA [None]
